FAERS Safety Report 10146404 (Version 3)
Quarter: 2014Q3

REPORT INFORMATION
  Report Type: Spontaneous
  Country: FR (occurrence: FR)
  Receive Date: 20140501
  Receipt Date: 20140903
  Transmission Date: 20150326
  Serious: Yes (Hospitalization, Other)
  Sender: FDA-Public Use
  Company Number: FR-PFIZER INC-2014115819

PATIENT
  Age: 75 Year
  Sex: Male
  Weight: 66 kg

DRUGS (6)
  1. AMLOR [Suspect]
     Active Substance: AMLODIPINE BESYLATE
     Dosage: 5 MG, 1X/DAY
     Route: 048
     Dates: start: 201303, end: 201307
  2. INEXIUM /01479302/ [Suspect]
     Active Substance: ESOMEPRAZOLE MAGNESIUM
     Indication: PROPHYLAXIS
     Dosage: 20 MG, 1X/DAY
     Route: 048
     Dates: start: 201303, end: 201307
  3. TAHOR [Suspect]
     Active Substance: ATORVASTATIN CALCIUM
     Dosage: 10 MG, 1X/DAY
     Route: 048
     Dates: start: 201303, end: 201307
  4. KARDEGIC [Concomitant]
     Active Substance: ASPIRIN LYSINE
     Indication: ISCHAEMIC STROKE
     Dosage: 75 MG, DAILY
     Route: 048
     Dates: start: 201303
  5. SERETIDE [Concomitant]
     Active Substance: FLUTICASONE FUROATE\SALMETEROL XINAFOATE
     Dosage: UNK
     Route: 048
  6. COVERSYL [Concomitant]
     Active Substance: PERINDOPRIL
     Dosage: UNK
     Route: 048
     Dates: start: 201303, end: 201305

REACTIONS (3)
  - Weight decreased [Unknown]
  - Nephropathy [Recovered/Resolved with Sequelae]
  - Decreased appetite [Unknown]

NARRATIVE: CASE EVENT DATE: 201306
